FAERS Safety Report 8151431-8 (Version None)
Quarter: 2012Q1

REPORT INFORMATION
  Report Type: 
  Country: None (occurrence: None)
  Receive Date: 20120220
  Receipt Date: 20120210
  Transmission Date: 20120608
  Serious: Yes (Hospitalization)
  Sender: FDA-Public Use
  Company Number: CH-TEVA-322060ISR

PATIENT
  Sex: Female

DRUGS (10)
  1. NORVASC [Concomitant]
     Route: 048
     Dates: end: 20090909
  2. TRISENOX [Suspect]
     Dates: start: 20090408
  3. METHOTREXATE [Suspect]
     Dates: start: 20090618, end: 20090818
  4. ATRACURIUM BESYLATE [Suspect]
     Dates: start: 20090618, end: 20090818
  5. NEUPOGEN [Concomitant]
     Dates: start: 20090909, end: 20090911
  6. MERCAPTOPURINE [Suspect]
     Dates: start: 20090618, end: 20090818
  7. METOPROLOL TARTRATE AND HYDROCHLOROTHIAZIDE [Concomitant]
     Route: 048
     Dates: end: 20090909
  8. HYDROCORTONE [Concomitant]
     Route: 048
     Dates: end: 20090909
  9. TRISENOX [Suspect]
     Dates: start: 20090129
  10. TORSEMIDE [Concomitant]
     Route: 048
     Dates: end: 20090909

REACTIONS (1)
  - PANCYTOPENIA [None]
